FAERS Safety Report 7052211-7 (Version None)
Quarter: 2010Q4

REPORT INFORMATION
  Report Type: 
  Country: None (occurrence: None)
  Receive Date: 20101018
  Receipt Date: 20101018
  Transmission Date: 20110411
  Serious: Yes (Other)
  Sender: FDA-Public Use
  Company Number: None

PATIENT
  Sex: Male
  Weight: 63.5036 kg

DRUGS (2)
  1. NALTREXONE HYDROCHLORIDE [Suspect]
     Indication: ALCOHOLISM
     Dosage: .5 TABLET 1/DAY PO
     Route: 048
     Dates: start: 20101006, end: 20101016
  2. NALTREXONE HYDROCHLORIDE [Suspect]
     Indication: PROPHYLAXIS
     Dosage: .5 TABLET 1/DAY PO
     Route: 048
     Dates: start: 20101006, end: 20101016

REACTIONS (4)
  - AGITATION [None]
  - APHAGIA [None]
  - DECREASED INTEREST [None]
  - SOMNOLENCE [None]
